FAERS Safety Report 5017822-9 (Version None)
Quarter: 2006Q2

REPORT INFORMATION
  Report Type: 
  Country: None (occurrence: None)
  Receive Date: 20060530
  Receipt Date: 20060515
  Transmission Date: 20061013
  Serious: Yes (Death, Hospitalization)
  Sender: FDA-Public Use
  Company Number: 2005130944

PATIENT
  Sex: Female
  Weight: 72.5755 kg

DRUGS (1)
  1. BEXTRA [Suspect]
     Indication: PAIN
     Dosage: 10 MG (10 MG, 1 IN 1 D)
     Dates: start: 20030218

REACTIONS (1)
  - MYOCARDIAL INFARCTION [None]
